FAERS Safety Report 5508906-7 (Version None)
Quarter: 2007Q4

REPORT INFORMATION
  Report Type: 
  Country: None (occurrence: None)
  Receive Date: 20071031
  Receipt Date: 20070910
  Transmission Date: 20080405
  Serious: Yes (Other)
  Sender: FDA-Public Use
  Company Number: 200713600BWH

PATIENT
  Sex: Female

DRUGS (1)
  1. SORAFENIB [Suspect]
     Indication: ANGIOSARCOMA
     Dosage: 400 MG, QD, ORAL;   200 MG, QOD, ORAL
     Route: 048

REACTIONS (4)
  - BLOOD BILIRUBIN INCREASED [None]
  - GAMMA-GLUTAMYLTRANSFERASE DECREASED [None]
  - HEPATIC FUNCTION ABNORMAL [None]
  - LIVER FUNCTION TEST ABNORMAL [None]
